FAERS Safety Report 14431063 (Version 4)
Quarter: 2019Q1

REPORT INFORMATION
  Report Type: Spontaneous
  Country: IT (occurrence: IT)
  Receive Date: 20180124
  Receipt Date: 20190327
  Transmission Date: 20190417
  Serious: Yes (Life-Threatening, Other)
  Sender: FDA-Public Use
  Company Number: IT-ACCORD-062897

PATIENT
  Age: 73 Year
  Sex: Male

DRUGS (4)
  1. CYTARABINE/CYTARABINE HYDROCHLORIDE/CYTARABINE OCFOSFATE [Suspect]
     Active Substance: CYTARABINE
     Indication: DIFFUSE LARGE B-CELL LYMPHOMA
     Dosage: ALTERNATED WITH BI-WEEKLY ADMINISTRATION OF INTRATHECAL LIPOSOMAL CYTARABINE FOR FOUR CYCLES
     Route: 037
  2. REVLIMID [Suspect]
     Active Substance: LENALIDOMIDE
     Indication: DIFFUSE LARGE B-CELL LYMPHOMA
     Dosage: ALSO RECEIVED AT DOSE OF 10 MG
     Route: 048
  3. LENALIDOMIDE [Suspect]
     Active Substance: LENALIDOMIDE
     Indication: DIFFUSE LARGE B-CELL LYMPHOMA
     Route: 065
  4. METHOTREXATE. [Suspect]
     Active Substance: METHOTREXATE
     Indication: DIFFUSE LARGE B-CELL LYMPHOMA
     Dosage: HIGH-DOSE

REACTIONS (5)
  - Therapeutic response decreased [Unknown]
  - Neutropenia [Unknown]
  - Stomatitis [Recovered/Resolved]
  - Pneumonia [Unknown]
  - Pancytopenia [Recovered/Resolved]
